FAERS Safety Report 9250252 (Version 1)
Quarter: 2013Q2

REPORT INFORMATION
  Report Type: Spontaneous
  Country: US (occurrence: US)
  Receive Date: 20130424
  Receipt Date: 20130424
  Transmission Date: 20140414
  Serious: No
  Sender: FDA-Public Use
  Company Number: US-009507513-1304USA009675

PATIENT
  Age: 58 Year
  Sex: Female

DRUGS (2)
  1. VICTRELIS [Suspect]
     Indication: HEPATITIS C
     Dosage: 800 MG, TID
     Route: 048
     Dates: start: 20130304, end: 20130417
  2. PEGINTRON [Suspect]
     Indication: HEPATITIS C
     Dosage: 96 MICROGRAM, QW
     Route: 058
     Dates: start: 20130304, end: 20130417

REACTIONS (5)
  - Skin irritation [Unknown]
  - Depression [Unknown]
  - Dysgeusia [Unknown]
  - Decreased appetite [Unknown]
  - Insomnia [Unknown]
